FAERS Safety Report 5961021-0 (Version None)
Quarter: 2008Q4

REPORT INFORMATION
  Report Type: 
  Country: None (occurrence: None)
  Receive Date: 20081121
  Receipt Date: 20080512
  Transmission Date: 20090506
  Serious: No
  Sender: FDA-Public Use
  Company Number: A0727474A

PATIENT
  Age: 84 Year
  Sex: Female

DRUGS (3)
  1. LANOXIN [Suspect]
     Dosage: .125MG PER DAY
     Route: 048
     Dates: start: 19950701
  2. SYNTHROID [Concomitant]
  3. ATENOLOL [Concomitant]

REACTIONS (1)
  - RASH [None]
